FAERS Safety Report 21213807 (Version 1)
Quarter: 2022Q3

REPORT INFORMATION
  Report Type: Spontaneous
  Country: US (occurrence: US)
  Receive Date: 20220816
  Receipt Date: 20220816
  Transmission Date: 20221026
  Serious: No
  Sender: FDA-Public Use
  Company Number: US-SA-SAC20220810002073

PATIENT
  Sex: Female

DRUGS (4)
  1. DUPIXENT [Suspect]
     Active Substance: DUPILUMAB
     Indication: Dermatitis atopic
     Dosage: 300 MG, QOW
     Route: 058
     Dates: start: 20210723
  2. BLACK COHOSH [CIMICIFUGA RACEMOSA RHIZOME;CIMICIFUGA RACEMOSA ROOT] [Concomitant]
  3. ESTROGEL [Concomitant]
     Active Substance: ESTRADIOL
  4. GINKGO [Concomitant]
     Active Substance: GINKGO

REACTIONS (1)
  - COVID-19 [Unknown]
